FAERS Safety Report 6506750-5 (Version None)
Quarter: 2009Q4

REPORT INFORMATION
  Report Type: 
  Country: None (occurrence: None)
  Receive Date: 20091221
  Receipt Date: 20091215
  Transmission Date: 20100525
  Serious: Yes (Other)
  Sender: FDA-Public Use
  Company Number: US-ROCHE-674948

PATIENT
  Sex: Male
  Weight: 65.8 kg

DRUGS (6)
  1. XELODA [Suspect]
     Route: 048
  2. XELODA [Suspect]
     Route: 048
  3. TARCEVA [Suspect]
     Route: 048
  4. FENTANYL CITRATE [Suspect]
     Route: 065
  5. GEMCITABINE [Concomitant]
     Dosage: FOR SEVEN WEEKS
  6. ONDANSETRON [Concomitant]
     Indication: NAUSEA

REACTIONS (9)
  - BLISTER [None]
  - CELL MARKER INCREASED [None]
  - CONSTIPATION [None]
  - MALIGNANT NEOPLASM PROGRESSION [None]
  - NAUSEA [None]
  - PAIN [None]
  - RASH [None]
  - STOMATITIS [None]
  - WEIGHT FLUCTUATION [None]
